FAERS Safety Report 6528673-8 (Version None)
Quarter: 2009Q4

REPORT INFORMATION
  Report Type: 
  Country: None (occurrence: None)
  Receive Date: 20091222
  Receipt Date: 20091214
  Transmission Date: 20100525
  Serious: Yes (Hospitalization)
  Sender: FDA-Public Use
  Company Number: WAES 0912USA01830

PATIENT
  Age: 26 Year
  Sex: Male
  Weight: 92.0802 kg

DRUGS (12)
  1. CAP VORINOSTAT [Suspect]
     Indication: HODGKIN'S DISEASE
     Dosage: 400 MG/BID/PO
     Route: 048
     Dates: start: 20091117, end: 20091121
  2. ETOPOSIDE [Suspect]
     Indication: HODGKIN'S DISEASE
     Dosage: 220 MG/DAILY/IV
     Route: 042
     Dates: start: 20091119, end: 20091121
  3. CARBOPLATIN [Suspect]
     Indication: HODGKIN'S DISEASE
     Dosage: 800 MG/IV
     Route: 042
     Dates: start: 20091120
  4. IFOSFAMIDE [Suspect]
     Indication: HODGKIN'S DISEASE
     Dosage: 11 GM/IV
     Route: 042
     Dates: start: 20091120
  5. EMEND [Concomitant]
  6. NAPROSYN [Concomitant]
  7. VICODIN [Concomitant]
  8. DEXAMETHASONE [Concomitant]
  9. LOPERAMIDE HYDROCHLORIDE [Concomitant]
  10. MESNA [Concomitant]
  11. ONDANSETRON [Concomitant]
  12. PEGFILGRASTIM [Concomitant]

REACTIONS (14)
  - ALPHA HAEMOLYTIC STREPTOCOCCAL INFECTION [None]
  - BLOOD SODIUM DECREASED [None]
  - CATHETER CULTURE POSITIVE [None]
  - CULTURE URINE POSITIVE [None]
  - DECREASED APPETITE [None]
  - EPISTAXIS [None]
  - FATIGUE [None]
  - FEBRILE NEUTROPENIA [None]
  - PANCYTOPENIA [None]
  - SPLENOMEGALY [None]
  - TACHYCARDIA [None]
  - VIRAL UPPER RESPIRATORY TRACT INFECTION [None]
  - WEIGHT DECREASED [None]
  - WHEEZING [None]
